FAERS Safety Report 6374723-1 (Version None)
Quarter: 2009Q3

REPORT INFORMATION
  Report Type: 
  Country: None (occurrence: None)
  Receive Date: 20090924
  Receipt Date: 20090924
  Transmission Date: 20100115
  Serious: Yes (Hospitalization, Other)
  Sender: FDA-Public Use
  Company Number: US-PFIZER INC-2009229581

PATIENT
  Sex: Female
  Weight: 54.431 kg

DRUGS (1)
  1. EXUBERA [Suspect]
     Indication: DIABETES MELLITUS
     Dosage: UNK
     Dates: start: 20070601, end: 20070901

REACTIONS (3)
  - COMA [None]
  - DIABETES MELLITUS [None]
  - DRUG INEFFECTIVE [None]
